FAERS Safety Report 25315978 (Version 1)
Quarter: 2025Q2

REPORT INFORMATION
  Report Type: Spontaneous
  Country: US (occurrence: US)
  Receive Date: 20250515
  Receipt Date: 20250515
  Transmission Date: 20250717
  Serious: Yes (Death, Hospitalization)
  Sender: AMGEN
  Company Number: US-AMGEN-USASP2025093902

PATIENT
  Age: 17 Year
  Sex: Male

DRUGS (10)
  1. RITUXIMAB [Suspect]
     Active Substance: RITUXIMAB
     Indication: Haemophagocytic lymphohistiocytosis
     Route: 065
  2. RITUXIMAB [Suspect]
     Active Substance: RITUXIMAB
     Indication: T-cell lymphoma
  3. WHOLE BLOOD [Concomitant]
     Active Substance: WHOLE BLOOD
     Indication: Pancytopenia
  4. CRYOPRECIPITATED ANTIHEMOPHILIC FACTOR (HUMAN) [Concomitant]
     Active Substance: CRYOPRECIPITATED ANTIHEMOPHILIC FACTOR (HUMAN)
     Indication: Pancytopenia
  5. PLATELETS [Concomitant]
     Active Substance: HUMAN PLATELET, ALLOGENIC
     Indication: Pancytopenia
  6. ALBUMIN HUMAN [Concomitant]
     Active Substance: ALBUMIN HUMAN
     Indication: Azotaemia
  7. UNSPECIFIED INGREDIENT [Concomitant]
     Active Substance: UNSPECIFIED INGREDIENT
  8. ANAKINRA [Concomitant]
     Active Substance: ANAKINRA
     Indication: Haemophagocytic lymphohistiocytosis
  9. Immunoglobulin [Concomitant]
     Indication: Haemophagocytic lymphohistiocytosis
     Route: 040
  10. GAMIFANT [Concomitant]
     Active Substance: EMAPALUMAB-LZSG
     Indication: Haemophagocytic lymphohistiocytosis

REACTIONS (2)
  - T-cell lymphoma [Fatal]
  - Haemophagocytic lymphohistiocytosis [Fatal]
